FAERS Safety Report 14062066 (Version 1)
Quarter: 2017Q4

REPORT INFORMATION
  Report Type: Spontaneous
  Country: IT (occurrence: IT)
  Receive Date: 20171009
  Receipt Date: 20171009
  Transmission Date: 20180321
  Serious: Yes (Hospitalization)
  Sender: FDA-Public Use
  Company Number: IT-SA-2017SA187476

PATIENT
  Age: 87 Year
  Sex: Male

DRUGS (6)
  1. HUMALOG [Suspect]
     Active Substance: INSULIN LISPRO
     Indication: DIABETES MELLITUS
     Route: 058
     Dates: start: 20170101, end: 20170826
  2. HALDOL [Concomitant]
     Active Substance: HALOPERIDOL
     Route: 048
  3. FINASTID [Concomitant]
     Dosage: 5 MG
     Route: 048
  4. TOUJEO [Suspect]
     Active Substance: INSULIN GLARGINE
     Indication: DIABETES MELLITUS
     Dosage: DOSE:1 UNIT(S)
     Route: 058
     Dates: start: 20170101, end: 20170826
  5. CATAPRESAN TTS [Concomitant]
     Active Substance: CLONIDINE
     Dosage: 2 5 MG TRANSDERMAL PATCHES ^2 PATCHES TRANSDERMAL + 2 PATCH COVER
     Route: 062
  6. FLUXUM [Concomitant]
     Active Substance: PARNAPARIN SODIUM
     Route: 058

REACTIONS (2)
  - Hypoglycaemia [Unknown]
  - Sopor [Unknown]

NARRATIVE: CASE EVENT DATE: 20170826
